FAERS Safety Report 21789713 (Version 1)
Quarter: 2022Q4

REPORT INFORMATION
  Report Type: Report from Study
  Country: US (occurrence: US)
  Receive Date: 20221228
  Receipt Date: 20221228
  Transmission Date: 20230112
  Serious: No
  Sender: FDA-Public Use
  Company Number: US-ABBVIE-4251573

PATIENT
  Sex: Male

DRUGS (15)
  1. VENCLEXTA [Suspect]
     Active Substance: VENETOCLAX
     Indication: Chronic lymphocytic leukaemia
     Route: 048
     Dates: start: 20220922
  2. Metoprolol Tartrate Oral Tablet 50 mg [Concomitant]
     Indication: Product used for unknown indication
     Route: 048
  3. LISINOPRIL [Concomitant]
     Active Substance: LISINOPRIL
     Indication: Product used for unknown indication
     Route: 065
  4. PANTOPRAZOLE SODIUM [Concomitant]
     Active Substance: PANTOPRAZOLE SODIUM
     Indication: Product used for unknown indication
     Route: 065
  5. XALATAN [Concomitant]
     Active Substance: LATANOPROST
     Indication: Product used for unknown indication
     Route: 065
  6. Levothyroxine Sodium 137 mcg [Concomitant]
     Indication: Product used for unknown indication
     Dosage: 137 MCG
     Route: 065
  7. Vitamin D 25 mcg [Concomitant]
     Indication: Product used for unknown indication
     Dosage: 25 MCG
     Route: 065
  8. Furosemide Oral Tablet 20 MG [Concomitant]
     Indication: Product used for unknown indication
     Route: 048
  9. FISH OIL [Concomitant]
     Active Substance: FISH OIL
     Indication: Product used for unknown indication
     Dosage: EXTRA STRENGTH 1200 MG
     Route: 065
  10. FINASTERIDE [Concomitant]
     Active Substance: FINASTERIDE
     Indication: Product used for unknown indication
     Route: 065
  11. Spironolactone Oral Tablet 100 MG [Concomitant]
     Indication: Product used for unknown indication
     Route: 048
  12. Sodium Chloride 1 gm [Concomitant]
     Indication: Product used for unknown indication
     Route: 065
  13. Allopurinol Oral Tablet 300 MG [Concomitant]
     Indication: Product used for unknown indication
     Route: 048
  14. VITAMIN B COMPLEX [Concomitant]
     Active Substance: CYANOCOBALAMIN\DEXPANTHENOL\NIACINAMIDE\PYRIDOXINE HYDROCHLORIDE\RIBOFLAVIN 5^-PHOSPHATE SODIUM\THIA
     Indication: Product used for unknown indication
     Route: 065
  15. Eliquis Oral Tablet 5 MG [Concomitant]
     Indication: Product used for unknown indication
     Route: 048

REACTIONS (2)
  - Fall [Unknown]
  - Back pain [Unknown]
